FAERS Safety Report 16989789 (Version 1)
Quarter: 2019Q4

REPORT INFORMATION
  Report Type: Spontaneous
  Country: CA (occurrence: CA)
  Receive Date: 20191104
  Receipt Date: 20191104
  Transmission Date: 20200122
  Serious: Yes (Other)
  Sender: FDA-Public Use
  Company Number: CA-PFIZER INC-2019466700

PATIENT

DRUGS (2)
  1. ATIVAN [Suspect]
     Active Substance: LORAZEPAM
     Dosage: UNK
     Route: 065
  2. PAROXETINE HYDROCHLORIDE. [Suspect]
     Active Substance: PAROXETINE HYDROCHLORIDE
     Indication: INSOMNIA
     Dosage: UNK
     Route: 065

REACTIONS (8)
  - Suicidal ideation [Recovered/Resolved]
  - Confusional state [Recovered/Resolved]
  - Off label use [Recovered/Resolved]
  - Malaise [Recovered/Resolved]
  - Anger [Recovered/Resolved]
  - Somnolence [Recovered/Resolved]
  - Fatigue [Recovered/Resolved]
  - Rash [Recovered/Resolved]
